FAERS Safety Report 13317833 (Version 3)
Quarter: 2017Q3

REPORT INFORMATION
  Report Type: Spontaneous
  Country: US (occurrence: US)
  Receive Date: 20170310
  Receipt Date: 20170921
  Transmission Date: 20171127
  Serious: No
  Sender: FDA-Public Use
  Company Number: US-PFIZER INC-2017016116

PATIENT
  Age: 63 Year
  Sex: Female
  Weight: 74 kg

DRUGS (24)
  1. CALCIUM [Concomitant]
     Active Substance: CALCIUM
     Dosage: 1 DF, 2X/DAY
     Route: 048
  2. LORATADINE. [Concomitant]
     Active Substance: LORATADINE
     Dosage: 10 MG, 1X/DAY
     Route: 048
  3. VITAMIN C [Concomitant]
     Active Substance: ASCORBIC ACID
     Dosage: 1000 MG, 1X/DAY
     Route: 048
  4. TYLENOL [Concomitant]
     Active Substance: ACETAMINOPHEN
     Dosage: 325 MG, AS NEEDED
     Route: 048
  5. SYNTHROID [Concomitant]
     Active Substance: LEVOTHYROXINE SODIUM
     Dosage: 100 UG, DAILY
     Route: 048
  6. BENADRYL [Concomitant]
     Active Substance: DIPHENHYDRAMINE HYDROCHLORIDE
     Dosage: 25 MG, AS NEEDED (EVERY NIGHT)
     Route: 048
  7. VAGIFEM [Concomitant]
     Active Substance: ESTRADIOL
     Dosage: 10 UG, CYCLIC (3X A WEEK)
     Route: 067
  8. FLAXSEED [Concomitant]
     Active Substance: FLAX SEED
     Dosage: UNK UNK, 1X/DAY (2600)
     Route: 048
  9. LIPITOR [Concomitant]
     Active Substance: ATORVASTATIN CALCIUM
     Dosage: 20 MG, 1X/DAY
     Route: 048
  10. TRIPLE FLEX [Concomitant]
     Dosage: 1 DF, 2X/DAY
     Route: 048
  11. ZETIA [Concomitant]
     Active Substance: EZETIMIBE
     Dosage: 10 MG, 1X/DAY
     Route: 048
  12. TUBERCULIN NOS [Concomitant]
     Active Substance: TUBERCULIN PURIFIED PROTEIN DERIVATIVE
  13. VITAMIN D [Concomitant]
     Active Substance: CHOLECALCIFEROL
     Dosage: 50000 IU, EVERY 3 WEEKS
     Route: 048
  14. COQ10 [Concomitant]
     Active Substance: UBIDECARENONE
     Dosage: 300 MG, 1X/DAY (WITH A MEAL)
     Route: 048
  15. ERGOCALCIFEROL. [Concomitant]
     Active Substance: ERGOCALCIFEROL
     Dosage: 50000 IU, EVERY 3 WEEKS
     Route: 048
  16. SOMAVERT [Suspect]
     Active Substance: PEGVISOMANT
     Indication: ACROMEGALY
     Dosage: 10 MG, CYCLIC, (6 DAYS A WEEK)
     Route: 058
     Dates: start: 200707
  17. DEXILANT [Concomitant]
     Active Substance: DEXLANSOPRAZOLE
     Dosage: 60 MG, DAILY (ONCE OR TWICE A DAY)
     Route: 048
  18. FOLIC ACID. [Concomitant]
     Active Substance: FOLIC ACID
     Dosage: 1 MG, 1X/DAY
     Route: 048
  19. BIOTIN [Concomitant]
     Active Substance: BIOTIN
     Dosage: 5000 UG, 1X/DAY
     Route: 048
  20. MAALOX ANTACID [Concomitant]
     Active Substance: ALUMINUM HYDROXIDE\DIMETHICONE\MAGNESIUM HYDROXIDE
     Dosage: 600 MG, AS NEEDED
     Route: 048
  21. VITAMIN B12 [Concomitant]
     Active Substance: CYANOCOBALAMIN
     Dosage: 2500 UG, CYCLIC (TWO TIMES A WEEK)
     Route: 060
  22. FLONASE [Concomitant]
     Active Substance: FLUTICASONE PROPIONATE
     Dosage: 4 DF (2 SPRAYS IN EACH NOSTRIL NASALLY 1-2 TIMES A DAY), DAILY
     Route: 045
  23. MELOXICAM. [Concomitant]
     Active Substance: MELOXICAM
     Dosage: 15 MG, 1X/DAY
     Route: 048
  24. OMEGA 3 [Concomitant]
     Active Substance: OMEGA-3 FATTY ACIDS
     Dosage: 1000 MG, 2X/DAY
     Route: 048

REACTIONS (6)
  - Product quality issue [Unknown]
  - Poor quality drug administered [Unknown]
  - Wrong technique in product usage process [Unknown]
  - Underdose [Unknown]
  - Injection site pain [Unknown]
  - Intentional product misuse [Unknown]
